FAERS Safety Report 10175799 (Version 1)
Quarter: 2014Q2

REPORT INFORMATION
  Report Type: Report from Study
  Country: US (occurrence: US)
  Receive Date: 20140516
  Receipt Date: 20140516
  Transmission Date: 20141212
  Serious: Yes (Death)
  Sender: FDA-Public Use
  Company Number: US-ASTRAZENECA-2014SE33414

PATIENT
  Sex: Male

DRUGS (1)
  1. TENORMIN [Suspect]
     Route: 048

REACTIONS (2)
  - Death [Fatal]
  - Feeling of despair [Unknown]
